FAERS Safety Report 25895606 (Version 1)
Quarter: 2025Q4

REPORT INFORMATION
  Report Type: Spontaneous
  Country: US (occurrence: None)
  Receive Date: 20251007
  Receipt Date: 20251007
  Transmission Date: 20260118
  Serious: No
  Sender: FDA-CTU
  Company Number: None

PATIENT

DRUGS (1)
  1. TYENNE [Suspect]
     Active Substance: TOCILIZUMAB-AAZG

REACTIONS (5)
  - Injection site swelling [None]
  - Injection site erythema [None]
  - Injection site warmth [None]
  - Dyspnoea [None]
  - Dyspnoea [None]
